FAERS Safety Report 9727846 (Version 4)
Quarter: 2014Q1

REPORT INFORMATION
  Report Type: Spontaneous
  Country: IT (occurrence: IT)
  Receive Date: 20131204
  Receipt Date: 20140116
  Transmission Date: 20141002
  Serious: Yes (Life-Threatening, Hospitalization)
  Sender: FDA-Public Use
  Company Number: IT-BIOGENIDEC-2013BI114486

PATIENT
  Age: 26 Year
  Sex: Female

DRUGS (3)
  1. TYSABRI [Suspect]
     Indication: RELAPSING-REMITTING MULTIPLE SCLEROSIS
     Route: 042
     Dates: start: 201004
  2. TRIAZOLAM [Concomitant]
  3. LORAZEPAM [Concomitant]

REACTIONS (2)
  - Suicide attempt [Not Recovered/Not Resolved]
  - Pelvic fracture [Not Recovered/Not Resolved]
